FAERS Safety Report 24443102 (Version 2)
Quarter: 2025Q2

REPORT INFORMATION
  Report Type: Spontaneous
  Country: JP (occurrence: JP)
  Receive Date: 20241016
  Receipt Date: 20250407
  Transmission Date: 20250717
  Serious: Yes (Death, Other)
  Sender: GLAXOSMITHKLINE
  Company Number: None

PATIENT

DRUGS (19)
  1. MOMELOTINIB [Suspect]
     Active Substance: MOMELOTINIB
     Indication: Primary myelofibrosis
     Dosage: 200 MG, 1D
     Route: 048
     Dates: start: 20240821
  2. ACETAMINOPHEN [Concomitant]
     Active Substance: ACETAMINOPHEN
     Indication: Pyrexia
     Route: 048
     Dates: start: 20240808
  3. BISOPROLOL FUMARATE [Concomitant]
     Active Substance: BISOPROLOL FUMARATE
     Indication: Hypertension
     Dosage: 5 MG, 1D
     Route: 048
     Dates: end: 20240904
  4. BISOPROLOL FUMARATE [Concomitant]
     Active Substance: BISOPROLOL FUMARATE
     Dosage: 2.5 MG, BID
     Route: 048
     Dates: start: 20240905, end: 20241003
  5. EPLERENONE [Concomitant]
     Active Substance: EPLERENONE
     Dosage: 100 MG, 1D
     Route: 048
     Dates: end: 20240904
  6. NIFEDIPINE [Concomitant]
     Active Substance: NIFEDIPINE
     Dosage: 20 MG, 1D
     Route: 048
     Dates: end: 20241003
  7. TELMISARTAN [Concomitant]
     Active Substance: TELMISARTAN
     Dosage: 80 MG, 1D
     Route: 048
     Dates: end: 20240904
  8. LANSOPRAZOLE [Concomitant]
     Active Substance: LANSOPRAZOLE
     Indication: Prophylaxis
     Dosage: 15 MG, 1D
     Route: 048
     Dates: start: 20240816, end: 20241003
  9. PREDNISOLONE [Concomitant]
     Active Substance: PREDNISOLONE
     Indication: Primary myelofibrosis
     Dosage: 5 MG, BID
     Route: 048
     Dates: start: 20240816, end: 20241003
  10. Hisinalc [Concomitant]
     Indication: Fluid replacement
     Dosage: 500 ML, 1D
     Route: 042
     Dates: start: 20240802, end: 20240909
  11. Rinaceto d [Concomitant]
     Indication: Fluid replacement
     Dosage: 500 ML, 1D
     Route: 042
     Dates: start: 20240806, end: 20240909
  12. CEFEPIME HYDROCHLORIDE [Concomitant]
     Active Substance: CEFEPIME HYDROCHLORIDE
     Indication: Cough
     Dosage: 1 G, BID
     Route: 042
     Dates: start: 20240802, end: 20240909
  13. REBLOZYL [Concomitant]
     Active Substance: LUSPATERCEPT-AAMT
     Indication: Anaemia
     Dosage: 64 MG, MO
     Route: 058
     Dates: start: 20240731, end: 20240821
  14. REBLOZYL [Concomitant]
     Active Substance: LUSPATERCEPT-AAMT
     Dosage: 85 MG, MO
     Route: 058
     Dates: start: 20240912, end: 20240912
  15. HUMAN RED BLOOD CELL [Concomitant]
     Active Substance: HUMAN RED BLOOD CELL
     Indication: Blood product transfusion dependent
     Route: 042
     Dates: start: 20240824, end: 20240824
  16. FUROSEMIDE [Concomitant]
     Active Substance: FUROSEMIDE
     Indication: Diuretic therapy
     Dosage: 20 MG, 1D
     Route: 048
     Dates: start: 20240914, end: 20240920
  17. FUROSEMIDE [Concomitant]
     Active Substance: FUROSEMIDE
     Dosage: 40 MG, 1D
     Route: 048
     Dates: start: 20240920, end: 20241003
  18. Solita-t1 [Concomitant]
     Indication: Fluid replacement
     Dosage: 500 ML, BID
     Route: 042
     Dates: start: 20240919, end: 20241001
  19. Solita-t1 [Concomitant]
     Dosage: 500 MG, 1D
     Route: 042
     Dates: start: 20241002, end: 20241002

REACTIONS (9)
  - Interstitial lung disease [Fatal]
  - Primary myelofibrosis [Fatal]
  - Asthenia [Fatal]
  - Hypertension [Unknown]
  - Decreased appetite [Unknown]
  - Insomnia [Unknown]
  - Hypophagia [Unknown]
  - Cough [Unknown]
  - Anaemia [Unknown]

NARRATIVE: CASE EVENT DATE: 20240904
